FAERS Safety Report 12950298 (Version 1)
Quarter: 2016Q4

REPORT INFORMATION
  Report Type: Spontaneous
  Country: GB (occurrence: GB)
  Receive Date: 20161116
  Receipt Date: 20161116
  Transmission Date: 20170207
  Serious: Yes (Hospitalization, Other)
  Sender: FDA-Public Use
  Company Number: GB-APOPHARMA USA, INC.-2016AP014494

PATIENT
  Age: 49 Year
  Sex: Female

DRUGS (1)
  1. ALKERAN [Suspect]
     Active Substance: MELPHALAN
     Indication: STEM CELL TRANSPLANT
     Dosage: 140 MG/M2, UNKNOWN
     Route: 065

REACTIONS (2)
  - Bacterial sepsis [Recovered/Resolved]
  - Neutropenia [Recovered/Resolved]
